FAERS Safety Report 9222382 (Version 8)
Quarter: 2019Q3

REPORT INFORMATION
  Report Type: Spontaneous
  Country: US (occurrence: US)
  Receive Date: 20130410
  Receipt Date: 20190708
  Transmission Date: 20191005
  Serious: Yes (Disabling)
  Sender: FDA-Public Use
  Company Number: US-009507513-1304USA003856

PATIENT
  Sex: Male

DRUGS (3)
  1. PROPECIA [Suspect]
     Active Substance: FINASTERIDE
     Indication: ANDROGENETIC ALOPECIA
     Dosage: 1 MG, UNK
     Route: 048
     Dates: start: 2002, end: 200403
  2. DARVOCET-N 100 [Concomitant]
     Active Substance: ACETAMINOPHEN\PROPOXYPHENE NAPSYLATE
     Indication: PAIN
     Dosage: 6 OR MORE DAILY
     Route: 048
  3. DEPAKOTE [Concomitant]
     Active Substance: DIVALPROEX SODIUM
     Indication: PAIN
     Dosage: 500MG 3-4 TIMES QD
     Route: 048

REACTIONS (17)
  - Erectile dysfunction [Unknown]
  - Cognitive disorder [Not Recovered/Not Resolved]
  - Depression [Not Recovered/Not Resolved]
  - Osteoarthritis [Unknown]
  - Frustration tolerance decreased [Unknown]
  - Thermal burn [Unknown]
  - Anxiety [Unknown]
  - Drug ineffective [Unknown]
  - Hyperlipidaemia [Unknown]
  - Insomnia [Unknown]
  - Back injury [Not Recovered/Not Resolved]
  - Asthma [Unknown]
  - Accident [Unknown]
  - Hypogonadism [Unknown]
  - Sexual dysfunction [Not Recovered/Not Resolved]
  - Carpal tunnel syndrome [Unknown]
  - Emotional distress [Unknown]

NARRATIVE: CASE EVENT DATE: 2003
